FAERS Safety Report 20602345 (Version 14)
Quarter: 2025Q1

REPORT INFORMATION
  Report Type: Report from Study
  Country: CA (occurrence: CA)
  Receive Date: 20220316
  Receipt Date: 20250226
  Transmission Date: 20250408
  Serious: Yes (Hospitalization, Other)
  Sender: TAKEDA
  Company Number: CA-TAKEDA-2019TUS037017

PATIENT
  Age: 13 Year
  Sex: Female
  Weight: 76 kg

DRUGS (15)
  1. VEDOLIZUMAB [Suspect]
     Active Substance: VEDOLIZUMAB
     Indication: Crohn^s disease
  2. VEDOLIZUMAB [Suspect]
     Active Substance: VEDOLIZUMAB
     Dosage: 300 MILLIGRAM, Q4WEEKS
     Dates: start: 20161115
  3. VEDOLIZUMAB [Suspect]
     Active Substance: VEDOLIZUMAB
  4. VEDOLIZUMAB [Suspect]
     Active Substance: VEDOLIZUMAB
     Dosage: 300 MILLIGRAM, Q4WEEKS
     Dates: start: 20181214
  5. VEDOLIZUMAB [Suspect]
     Active Substance: VEDOLIZUMAB
     Dosage: 300 MILLIGRAM, Q4WEEKS
  6. VEDOLIZUMAB [Suspect]
     Active Substance: VEDOLIZUMAB
     Dosage: 300 MILLIGRAM, Q4WEEKS
  7. RINVOQ [Suspect]
     Active Substance: UPADACITINIB
     Indication: Product used for unknown indication
  8. CORTISONE [Concomitant]
     Active Substance: CORTISONE
  9. VITAMIN D [Concomitant]
     Active Substance: VITAMIN D NOS
  10. CALCIUM [Concomitant]
     Active Substance: CALCIUM
  11. TYLENOL [Concomitant]
     Active Substance: ACETAMINOPHEN
     Indication: Premedication
  12. Cortiment [Concomitant]
     Dosage: 9 MILLIGRAM, QD
     Dates: start: 20180830
  13. IMURAN [Concomitant]
     Active Substance: AZATHIOPRINE
     Dosage: 100 MILLIGRAM, Q
     Dates: start: 20180830
  14. METHOTREXATE [Concomitant]
     Active Substance: METHOTREXATE
     Dates: start: 20161216, end: 20171107
  15. PREDNISONE [Concomitant]
     Active Substance: PREDNISONE

REACTIONS (14)
  - Haematochezia [Unknown]
  - Small intestinal obstruction [Unknown]
  - Aphthous ulcer [Unknown]
  - Diarrhoea [Unknown]
  - Frequent bowel movements [Unknown]
  - Off label use [Unknown]
  - Therapy partial responder [Unknown]
  - Oesophageal discomfort [Unknown]
  - Hepatic enzyme increased [Unknown]
  - Streptococcal infection [Unknown]
  - Infectious mononucleosis [Unknown]
  - Abdominal pain [Not Recovered/Not Resolved]
  - Constipation [Unknown]
  - Dyspepsia [Unknown]

NARRATIVE: CASE EVENT DATE: 20160517
